FAERS Safety Report 4350174-6 (Version None)
Quarter: 2004Q2

REPORT INFORMATION
  Report Type: 
  Country: None (occurrence: None)
  Receive Date: 20040426
  Receipt Date: 20040413
  Transmission Date: 20050107
  Serious: Yes (Hospitalization, Other)
  Sender: FDA-Public Use
  Company Number: 2004010207

PATIENT
  Age: 84 Year
  Sex: Female

DRUGS (12)
  1. UNASYN [Suspect]
     Indication: PNEUMONIA
     Dosage: 6 GRAM (BID), INTRAVENOUS
     Route: 042
     Dates: start: 20040206, end: 20040213
  2. OSELTAMIVIR (OSELTAMIVIR) [Suspect]
     Indication: INFLUENZA
     Dosage: 150 MG (BID), ORAL
     Route: 048
     Dates: start: 20040206, end: 20040210
  3. AMINOCAPROIC ACID (AMINOCAPROIC ACID) [Concomitant]
  4. TRANDOLAPRIL (TRANDOLAPRIL) [Concomitant]
  5. ISOSORBIDE MONONITRATE [Concomitant]
  6. FAMOTIDINE [Concomitant]
  7. VERAPAMIL HCL [Concomitant]
  8. MAGNESIUM OXIDE (MAGNESIOUM OXIDE) [Concomitant]
  9. ESTAZOLAM [Concomitant]
  10. SENNA LEAF (SENNA LEAF) [Concomitant]
  11. ISOSORBIDE DINITRATE [Concomitant]
  12. RINGER-LACTATE SOLUTION ^FRESENIUS^ (SODIUM LACTATE POTASSIUM CHLORIDE [Concomitant]

REACTIONS (2)
  - BONE MARROW DEPRESSION [None]
  - MYELODYSPLASTIC SYNDROME [None]
